FAERS Safety Report 7917039-1 (Version None)
Quarter: 2011Q4

REPORT INFORMATION
  Report Type: 
  Country: None (occurrence: None)
  Receive Date: 20111114
  Receipt Date: 20111029
  Transmission Date: 20120403
  Serious: Yes (Death, Hospitalization)
  Sender: FDA-Public Use
  Company Number: 2011AP002527

PATIENT
  Age: 61 Year
  Sex: Female

DRUGS (24)
  1. LORAZEPAM [Concomitant]
  2. ALENDRONATE SODIUM [Concomitant]
  3. CELECOXIB [Concomitant]
  4. CONJUGATED ESTROGENS (ESTROGENS CONJUGATED) [Concomitant]
  5. CYCLOBENZAPRINE [Concomitant]
  6. DESIPRAMINE HCL [Concomitant]
  7. BUDESONIDE [Concomitant]
  8. FLUCONAZOLE [Concomitant]
  9. FUROSEMIDE [Concomitant]
  10. HYDROXYCHLOROQUINE SULFATE [Concomitant]
  11. QUETIAPINE FUMARATE [Suspect]
     Indication: PRODUCT USED FOR UNKNOWN INDICATION
     Dosage: 400 MG;HS
  12. RISPERIDONE [Suspect]
     Indication: PRODUCT USED FOR UNKNOWN INDICATION
     Dosage: 2 MG;AM, 3 MG;HS
  13. PREDNISONE TAB [Concomitant]
  14. MOMETASONE DFUROATE (MOMETASONE FUROATE) [Concomitant]
  15. ALBUTEROL SULFATE [Concomitant]
  16. BACTRIM [Concomitant]
  17. TRAZODONE HCL [Concomitant]
  18. HALOPERIDOL [Suspect]
     Indication: PRODUCT USED FOR UNKNOWN INDICATION
     Dosage: 20 MG;HS
  19. HYDROXYZINE [Concomitant]
  20. LOPERAMIDE [Concomitant]
  21. SUMATRIPTAN (SUMATRIPTAN) [Concomitant]
  22. VENLAFAXINE [Concomitant]
  23. ATORVASTATIN [Concomitant]
  24. OMEPRAZOLE [Concomitant]

REACTIONS (32)
  - CONTUSION [None]
  - ELECTROLYTE IMBALANCE [None]
  - RENAL FAILURE [None]
  - APALLIC SYNDROME [None]
  - HYPOTENSION [None]
  - LIVEDO RETICULARIS [None]
  - BREATH SOUNDS ABNORMAL [None]
  - HAEMOGLOBIN INCREASED [None]
  - PAIN [None]
  - ANXIETY [None]
  - MENTAL STATUS CHANGES [None]
  - RESPIRATORY FAILURE [None]
  - NEUROLEPTIC MALIGNANT SYNDROME [None]
  - FALL [None]
  - TACHYPNOEA [None]
  - NORMETANEPHRINE URINE INCREASED [None]
  - SEPTIC SHOCK [None]
  - TACHYARRHYTHMIA [None]
  - 5-HYDROXYINDOLACETIC ACID IN URINE DECREASED [None]
  - RHABDOMYOLYSIS [None]
  - CYANOSIS [None]
  - ANTIPSYCHOTIC DRUG LEVEL INCREASED [None]
  - ANTIDEPRESSANT DRUG LEVEL INCREASED [None]
  - ASPIRATION [None]
  - HYPOXIC-ISCHAEMIC ENCEPHALOPATHY [None]
  - DEPRESSED LEVEL OF CONSCIOUSNESS [None]
  - PERIPHERAL COLDNESS [None]
  - ABDOMINAL DISTENSION [None]
  - CATECHOLAMINES URINE INCREASED [None]
  - GENERAL PHYSICAL HEALTH DETERIORATION [None]
  - METANEPHRINE URINE INCREASED [None]
  - HAEMODYNAMIC INSTABILITY [None]
